FAERS Safety Report 5963101-2 (Version None)
Quarter: 2008Q4

REPORT INFORMATION
  Report Type: 
  Country: None (occurrence: None)
  Receive Date: 20081119
  Receipt Date: 20081008
  Transmission Date: 20090506
  Serious: No
  Sender: FDA-Public Use
  Company Number: WAES 0810USA01672

PATIENT
  Age: 50 Year
  Sex: Male

DRUGS (4)
  1. JANUVIA [Suspect]
     Indication: DIABETES MELLITUS
     Dosage: 50 MG/DAILY/PO
     Route: 048
     Dates: start: 20080924
  2. HUMULIN N [Concomitant]
  3. HUMULIN R [Concomitant]
  4. METFORMIN [Concomitant]

REACTIONS (2)
  - SYNCOPE [None]
  - VERTIGO [None]
